FAERS Safety Report 13814870 (Version 1)
Quarter: 2017Q3

REPORT INFORMATION
  Report Type: Spontaneous
  Country: US (occurrence: US)
  Receive Date: 20170731
  Receipt Date: 20170731
  Transmission Date: 20171127
  Serious: No
  Sender: FDA-Public Use
  Company Number: US-BAYER-2017-144504

PATIENT
  Age: 51 Year
  Sex: Female

DRUGS (2)
  1. MIRALAX [Suspect]
     Active Substance: POLYETHYLENE GLYCOL 3350
     Indication: COLONOSCOPY
     Dosage: 30 DOSE BOTTLE WITH 32 OZ GATORADE.
     Route: 048
     Dates: start: 2017, end: 2017
  2. MIRALAX [Suspect]
     Active Substance: POLYETHYLENE GLYCOL 3350
     Indication: COLONOSCOPY
     Dosage: UNK
     Route: 048
     Dates: start: 2011, end: 2011

REACTIONS (4)
  - Product use in unapproved indication [None]
  - Off label use [Unknown]
  - Product use issue [None]
  - Drug prescribing error [Unknown]

NARRATIVE: CASE EVENT DATE: 201707
